FAERS Safety Report 9091150 (Version 1)
Quarter: 2013Q1

REPORT INFORMATION
  Report Type: Report from Study
  Country: US (occurrence: US)
  Receive Date: 20130130
  Receipt Date: 20130130
  Transmission Date: 20140127
  Serious: No
  Sender: FDA-Public Use
  Company Number: US-ABBOTT-12P-163-0979377-00

PATIENT
  Sex: Female
  Weight: 124.85 kg

DRUGS (7)
  1. HUMIRA [Suspect]
     Indication: RHEUMATOID ARTHRITIS
     Route: 058
     Dates: start: 20120720
  2. PREDNISONE (UNKNOWN) [Suspect]
     Indication: RHEUMATOID ARTHRITIS
     Dosage: BEING WEANED DOWN VERY SLOWLY, 1 MG EVERY 3 WEEKS.
     Route: 048
  3. LOTENSIN [Concomitant]
     Indication: HYPERTENSION
  4. COREG [Concomitant]
     Indication: CARDIOVASCULAR EVENT PROPHYLAXIS
  5. ESTRODOL [Concomitant]
     Indication: UNEVALUABLE EVENT
  6. POTASSIUM [Concomitant]
     Indication: ELECTROLYTE SUBSTITUTION THERAPY
  7. LASIX [Concomitant]
     Indication: DIURETIC THERAPY

REACTIONS (2)
  - Rash [Not Recovered/Not Resolved]
  - Pruritus [Recovering/Resolving]
